FAERS Safety Report 4617434-2 (Version None)
Quarter: 2005Q1

REPORT INFORMATION
  Report Type: 
  Country: None (occurrence: None)
  Receive Date: 20050324
  Receipt Date: 20050310
  Transmission Date: 20050727
  Serious: Yes (Other)
  Sender: FDA-Public Use
  Company Number: 200510921FR

PATIENT
  Age: 69 Year
  Sex: Male
  Weight: 64.5 kg

DRUGS (6)
  1. TAXOTERE [Suspect]
     Indication: LUNG CANCER METASTATIC
     Route: 042
     Dates: start: 20040101, end: 20040601
  2. SOLUPRED [Suspect]
  3. ZOLEDRONATE [Suspect]
     Indication: METASTASES TO BONE
     Route: 042
     Dates: start: 20030929, end: 20050127
  4. GEMCITABINE [Suspect]
     Indication: LUNG CANCER METASTATIC
     Dates: start: 20040301, end: 20040601
  5. RADIOTHERAPY [Suspect]
     Indication: METASTASES TO CENTRAL NERVOUS SYSTEM
     Dates: start: 20040223, end: 20040311
  6. CISPLATIN [Suspect]
     Indication: LUNG CANCER METASTATIC
     Dates: start: 20040101, end: 20040601

REACTIONS (7)
  - FUNGAL INFECTION [None]
  - GINGIVAL DISORDER [None]
  - JAW DISORDER [None]
  - LUNG ADENOCARCINOMA [None]
  - MALIGNANT NEOPLASM PROGRESSION [None]
  - OSTEONECROSIS [None]
  - PROSTATE CANCER METASTATIC [None]
